FAERS Safety Report 8922624 (Version 3)
Quarter: 2013Q1

REPORT INFORMATION
  Report Type: Spontaneous
  Country: FR (occurrence: FR)
  Receive Date: 20121125
  Receipt Date: 20130212
  Transmission Date: 20140127
  Serious: Yes (Death, Hospitalization, Other)
  Sender: FDA-Public Use
  Company Number: FR-BRISTOL-MYERS SQUIBB COMPANY-17135724

PATIENT
  Age: 40 Year
  Sex: Male
  Weight: 102 kg

DRUGS (5)
  1. YERVOY [Suspect]
     Indication: METASTATIC MALIGNANT MELANOMA
     Dosage: 2ND DOSE 29OCT12?3RD DOSE 17NOV12?4TH DOSE 11DEC12?4 COURSES
     Route: 042
     Dates: start: 20121008, end: 20121211
  2. INEXIUM [Concomitant]
  3. SKENAN [Concomitant]
  4. ACTISKENAN [Concomitant]
  5. PREDNISONE [Concomitant]

REACTIONS (6)
  - Malignant neoplasm progression [Fatal]
  - Pyrexia [Unknown]
  - Back pain [Unknown]
  - Tinnitus [Not Recovered/Not Resolved]
  - Balance disorder [Unknown]
  - Deafness [Not Recovered/Not Resolved]
